FAERS Safety Report 5824110-7 (Version None)
Quarter: 2008Q3

REPORT INFORMATION
  Report Type: 
  Country: None (occurrence: None)
  Receive Date: 20080722
  Receipt Date: 20080708
  Transmission Date: 20090109
  Serious: Yes (Life-Threatening, Hospitalization)
  Sender: FDA-Public Use
  Company Number: 1000000080

PATIENT
  Age: 87 Year
  Sex: Male

DRUGS (5)
  1. MEMANTINE (MEMANTINE HYDROCHLORIDE) (TABLETS) [Suspect]
     Dosage: ORAL
     Route: 048
     Dates: end: 20080521
  2. PREVISCAN (TABLETS) [Suspect]
     Indication: ATRIAL FIBRILLATION
     Dates: end: 20080521
  3. HEMIGOXINE NATIVELLE [Suspect]
     Dosage: ORAL
     Route: 048
     Dates: end: 20080521
  4. RAMIPRIL [Suspect]
     Dates: end: 20080521
  5. BISOPROLOL FUMARATE [Concomitant]

REACTIONS (6)
  - ANAEMIA [None]
  - CARDIOACTIVE DRUG LEVEL INCREASED [None]
  - FALL [None]
  - HAEMATOMA [None]
  - PROTHROMBIN LEVEL DECREASED [None]
  - RENAL FAILURE [None]
